FAERS Safety Report 24922547 (Version 1)
Quarter: 2025Q1

REPORT INFORMATION
  Report Type: Spontaneous
  Country: SA (occurrence: SA)
  Receive Date: 20250204
  Receipt Date: 20250204
  Transmission Date: 20250408
  Serious: Yes (Hospitalization, Other)
  Sender: AZURITY PHARMACEUTICALS
  Company Number: SA-AZURITY PHARMACEUTICALS, INC.-AZR202501-000420

PATIENT
  Age: 60 Year
  Sex: Female

DRUGS (4)
  1. BACLOFEN [Suspect]
     Active Substance: BACLOFEN
     Indication: Back pain
     Route: 065
  2. DEXTROSE SOLUTION [Concomitant]
     Active Substance: DEXTROSE
     Indication: Peritoneal dialysis
     Route: 065
  3. DEXTROSE SOLUTION [Concomitant]
     Active Substance: DEXTROSE
     Route: 065
  4. ICODEXTRIN [Concomitant]
     Active Substance: ICODEXTRIN
     Indication: Peritoneal dialysis
     Route: 065

REACTIONS (2)
  - Toxic encephalopathy [Recovered/Resolved]
  - Toxicity to various agents [Recovered/Resolved]
